FAERS Safety Report 6163356-8 (Version None)
Quarter: 2009Q2

REPORT INFORMATION
  Report Type: 
  Country: None (occurrence: None)
  Receive Date: 20090420
  Receipt Date: 20090420
  Transmission Date: 20091009
  Serious: Yes (Hospitalization)
  Sender: FDA-Public Use
  Company Number: None

PATIENT
  Age: 54 Year
  Sex: Male

DRUGS (1)
  1. PHENYTOIN SODIUM [Suspect]
     Indication: CONVULSION
     Dosage: 100 MG PO
     Route: 048
     Dates: start: 20081102, end: 20081110

REACTIONS (4)
  - ANTICONVULSANT DRUG LEVEL INCREASED [None]
  - ATAXIA [None]
  - DISTURBANCE IN ATTENTION [None]
  - SELF-MEDICATION [None]
